FAERS Safety Report 24201467 (Version 2)
Quarter: 2025Q1

REPORT INFORMATION
  Report Type: Spontaneous
  Country: US (occurrence: US)
  Receive Date: 20240812
  Receipt Date: 20250116
  Transmission Date: 20250409
  Serious: No
  Sender: SANOFI AVENTIS
  Company Number: US-SA-SAC20240807000295

PATIENT
  Age: 36 Year
  Sex: Female

DRUGS (2)
  1. DUPIXENT [Suspect]
     Active Substance: DUPILUMAB
     Indication: Dermatitis atopic
     Dosage: 300 MG, QOW
     Route: 058
  2. DUPIXENT [Suspect]
     Active Substance: DUPILUMAB
     Indication: Dyshidrotic eczema

REACTIONS (9)
  - Dry skin [Unknown]
  - Rash pruritic [Unknown]
  - Skin fissures [Unknown]
  - Eye pain [Unknown]
  - Muscle twitching [Unknown]
  - Dyshidrotic eczema [Unknown]
  - Rebound effect [Unknown]
  - Dry eye [Unknown]
  - Product use in unapproved indication [Unknown]
